FAERS Safety Report 14346784 (Version 2)
Quarter: 2018Q1

REPORT INFORMATION
  Report Type: Spontaneous
  Country: FR (occurrence: FR)
  Receive Date: 20180103
  Receipt Date: 20180130
  Transmission Date: 20180509
  Serious: Yes (Life-Threatening, Hospitalization, Other)
  Sender: FDA-Public Use
  Company Number: FR-PFIZER INC-2017550756

PATIENT
  Age: 77 Year
  Sex: Male
  Weight: 65 kg

DRUGS (12)
  1. ZOLPIDEM [Concomitant]
     Active Substance: ZOLPIDEM\ZOLPIDEM TARTRATE
     Dosage: 1 DF, EACH EVENING
     Route: 065
  2. CLINUTREN HP ENERGY [Concomitant]
     Dosage: 1 DF, DAILY
     Route: 065
  3. ALIMTA [Suspect]
     Active Substance: PEMETREXED DISODIUM
     Indication: LUNG ADENOCARCINOMA
     Dosage: 887.5 MG, CYCLICAL
     Route: 065
     Dates: start: 20171020
  4. ALIMTA [Suspect]
     Active Substance: PEMETREXED DISODIUM
     Dosage: 750 MG, CYCLICAL
     Route: 065
     Dates: start: 20171117
  5. AMLOR [Concomitant]
     Active Substance: AMLODIPINE BESYLATE
     Dosage: 5 MG, DAILY
     Route: 065
  6. EPREX [Concomitant]
     Active Substance: ERYTHROPOIETIN
     Dosage: 30000 IU, WEEKLY (1/W)
     Route: 065
  7. ALIMTA [Suspect]
     Active Substance: PEMETREXED DISODIUM
     Dosage: 750 MG, CYCLICAL
     Route: 065
     Dates: start: 20171117
  8. CARBOPLATINE HOSPIRA [Suspect]
     Active Substance: CARBOPLATIN
     Indication: LUNG ADENOCARCINOMA
     Dosage: 630 MG, CYCLICAL
     Route: 065
     Dates: start: 20171020
  9. CARBOPLATINE HOSPIRA [Suspect]
     Active Substance: CARBOPLATIN
     Dosage: 485 MG, CYCLICAL
     Route: 065
     Dates: start: 20171117
  10. ALIMTA [Suspect]
     Active Substance: PEMETREXED DISODIUM
     Dosage: 887.5 MG, CYCLICAL
     Route: 065
     Dates: start: 20171020
  11. SPECIAFOLDINE [Concomitant]
     Active Substance: FOLIC ACID
     Dosage: 1 DF, DAILY
     Route: 065
     Dates: start: 20171013
  12. EUPANTOL [Concomitant]
     Active Substance: PANTOPRAZOLE SODIUM
     Dosage: 1 DF, EACH EVENING
     Route: 065

REACTIONS (16)
  - Stasis dermatitis [Unknown]
  - General physical health deterioration [Unknown]
  - Purpura [Unknown]
  - Somnolence [Unknown]
  - Off label use [Unknown]
  - Vomiting [Unknown]
  - Aggression [Recovered/Resolved]
  - Brain injury [Unknown]
  - Hyperthermia [Unknown]
  - Communication disorder [Unknown]
  - Clonus [Unknown]
  - Discomfort [Unknown]
  - Bone marrow failure [Not Recovered/Not Resolved]
  - Abnormal behaviour [Unknown]
  - Decreased appetite [Unknown]
  - Lower respiratory tract congestion [Unknown]

NARRATIVE: CASE EVENT DATE: 20171020
